FAERS Safety Report 7783114-8 (Version None)
Quarter: 2011Q3

REPORT INFORMATION
  Report Type: 
  Country: None (occurrence: None)
  Receive Date: 20110928
  Receipt Date: 20110913
  Transmission Date: 20111222
  Serious: Yes (Hospitalization, Other)
  Sender: FDA-Public Use
  Company Number: PHHY2011BR82489

PATIENT
  Age: 62 Year
  Sex: Female
  Weight: 72 kg

DRUGS (5)
  1. ROSUVASTATIN [Concomitant]
     Dosage: 10 MG, QD
  2. RASILEZ [Suspect]
     Dosage: 300 MG, QD
  3. AMLODIPINE [Concomitant]
     Dosage: 5 MG, QD
  4. CLONIDINE HYDROCHLORIDE [Concomitant]
     Dosage: 0.200 MG, TID
  5. LOSARTAN POTASSIUM [Concomitant]
     Dosage: 100 MG, BID

REACTIONS (12)
  - CHRONIC OBSTRUCTIVE PULMONARY DISEASE [None]
  - ABDOMINAL DISTENSION [None]
  - COUGH [None]
  - NEPHROTIC SYNDROME [None]
  - DYSPNOEA [None]
  - TACHYPNOEA [None]
  - HEPATIC STEATOSIS [None]
  - OEDEMA [None]
  - PYREXIA [None]
  - PNEUMONIA [None]
  - BLOOD PRESSURE INCREASED [None]
  - EYELID OEDEMA [None]
